FAERS Safety Report 6737931-3 (Version None)
Quarter: 2010Q2

REPORT INFORMATION
  Report Type: 
  Country: None (occurrence: None)
  Receive Date: 20100524
  Receipt Date: 20100514
  Transmission Date: 20101027
  Serious: Yes (Death, Hospitalization, Other)
  Sender: FDA-Public Use
  Company Number: DE-ROCHE-685975

PATIENT
  Age: 68 Year
  Weight: 56 kg

DRUGS (10)
  1. CAPECITABINE [Suspect]
     Dosage: END OF TREATMENT PHASE, LAST DOSE OF PROTOCOL TREATMENT: 07 FEB 2008
     Route: 065
     Dates: end: 20080207
  2. NAVELBINE [Concomitant]
     Dates: start: 20080911, end: 20090127
  3. MORPHIN MERCK [Concomitant]
     Indication: PAIN
     Dosage: DOSE: 12-16 DROPS AS NECESSARY
     Dates: start: 20071029, end: 20090409
  4. LYRICA [Concomitant]
     Indication: PAIN
     Dosage: FREQUENCY: 1-0-1
     Dates: start: 20071101, end: 20090409
  5. PANTOPRAZOLE SODIUM [Concomitant]
     Indication: PROPHYLAXIS
     Dosage: FREQUENCY: 1-0-1; AS NESSARY
  6. TRANSTEC [Concomitant]
     Indication: PAIN
     Dosage: DOSE: 70 UG PER HOUR EVERY 3,5 DAYS
  7. VOLTAREN [Concomitant]
     Indication: PAIN
     Dosage: FREQUENCY: 1-0-1
  8. VOLTAREN [Concomitant]
  9. LAXOBERAL [Concomitant]
     Dosage: 10-20 DROPS AS NECESSARY
  10. BEVACIZUMAB [Concomitant]
     Dates: start: 20080911, end: 20090127

REACTIONS (2)
  - MALIGNANT NEOPLASM PROGRESSION [None]
  - PNEUMONIA [None]
